FAERS Safety Report 23399190 (Version 2)
Quarter: 2024Q1

REPORT INFORMATION
  Report Type: Spontaneous
  Country: PL (occurrence: PL)
  Receive Date: 20240113
  Receipt Date: 20240115
  Transmission Date: 20240410
  Serious: Yes (Death)
  Sender: FDA-Public Use
  Company Number: PL-ABBVIE-5585208

PATIENT
  Age: 55 Year
  Sex: Male

DRUGS (1)
  1. GLECAPREVIR\PIBRENTASVIR [Suspect]
     Active Substance: GLECAPREVIR\PIBRENTASVIR
     Indication: Hepatitis C
     Dosage: DISCONTINUATION WEEK: 2. ADMINISTERED REGIMEN: GP, 8 WEEKS
     Route: 048

REACTIONS (3)
  - Death [Fatal]
  - Encephalopathy [Unknown]
  - Ascites [Unknown]
